FAERS Safety Report 25687699 (Version 3)
Quarter: 2025Q3

REPORT INFORMATION
  Report Type: Spontaneous
  Country: EU (occurrence: EU)
  Receive Date: 20250817
  Receipt Date: 20250916
  Transmission Date: 20251020
  Serious: Yes (Death, Life-Threatening)
  Sender: MACLEODS
  Company Number: EU-MACLEODS PHARMA-MAC2025054681

PATIENT

DRUGS (8)
  1. QUETIAPINE [Suspect]
     Active Substance: QUETIAPINE
     Indication: Major depression
     Route: 065
  2. QUETIAPINE [Suspect]
     Active Substance: QUETIAPINE
     Indication: Panic disorder
  3. PAROXETINE [Suspect]
     Active Substance: PAROXETINE
     Indication: Panic disorder
     Route: 048
  4. PAROXETINE [Suspect]
     Active Substance: PAROXETINE
     Indication: Major depression
  5. ALPRAZOLAM [Suspect]
     Active Substance: ALPRAZOLAM
     Indication: Major depression
     Route: 065
  6. ALPRAZOLAM [Suspect]
     Active Substance: ALPRAZOLAM
     Indication: Panic disorder
  7. CLOZAPINE [Suspect]
     Active Substance: CLOZAPINE
     Indication: Major depression
     Route: 048
  8. CLOZAPINE [Suspect]
     Active Substance: CLOZAPINE
     Indication: Panic disorder

REACTIONS (12)
  - Completed suicide [Fatal]
  - Lividity [Fatal]
  - Poisoning [Fatal]
  - Toxicity to various agents [Fatal]
  - Intentional overdose [Fatal]
  - Potentiating drug interaction [Fatal]
  - Serotonin syndrome [Fatal]
  - Electrocardiogram QT prolonged [Fatal]
  - Ventricular arrhythmia [Fatal]
  - Brain oedema [Fatal]
  - Pulmonary congestion [Fatal]
  - Pulmonary oedema [Fatal]
